FAERS Safety Report 9776534 (Version 2)
Quarter: 2015Q2

REPORT INFORMATION
  Report Type: Spontaneous
  Country: FR (occurrence: FR)
  Receive Date: 20131220
  Receipt Date: 20150416
  Transmission Date: 20150821
  Serious: Yes (Hospitalization)
  Sender: FDA-Public Use
  Company Number: FR-FRI-1000052379

PATIENT
  Age: 62 Year
  Sex: Female

DRUGS (6)
  1. EUTHYRAL [Concomitant]
     Active Substance: LEVOTHYROXINE SODIUM\LIOTHYRONINE SODIUM
  2. MILNACIPRAN [Suspect]
     Active Substance: MILNACIPRAN
     Indication: PRODUCT USED FOR UNKNOWN INDICATION
     Dosage: 150 MG
     Route: 048
     Dates: start: 20131010, end: 20131104
  3. SEREVENT DISKUS [Concomitant]
     Active Substance: SALMETEROL XINAFOATE
  4. FLIXOTIDE [Concomitant]
     Active Substance: FLUTICASONE PROPIONATE
  5. THERALENE [Concomitant]
     Active Substance: TRIMEPRAZINE
     Route: 048
  6. SANMIGRAN [Concomitant]
     Active Substance: PIZOTYLINE MALEATE
     Dosage: 0.5 MG

REACTIONS (2)
  - Overdose [Unknown]
  - Mania [Recovered/Resolved]

NARRATIVE: CASE EVENT DATE: 20131104
